FAERS Safety Report 7701054-7 (Version None)
Quarter: 2011Q3

REPORT INFORMATION
  Report Type: 
  Country: None (occurrence: None)
  Receive Date: 20110822
  Receipt Date: 20110815
  Transmission Date: 20111222
  Serious: Yes (Hospitalization)
  Sender: FDA-Public Use
  Company Number: AU-B.I. PHARMACEUTICALS,INC./RIDGEFIELD-2011-AU-00752AU

PATIENT
  Sex: Female
  Weight: 47 kg

DRUGS (7)
  1. PRADAXA [Suspect]
     Indication: ATRIAL FIBRILLATION
     Dosage: 220 MG
     Dates: start: 20110713, end: 20110724
  2. BETALOC [Concomitant]
  3. ACTONEL [Concomitant]
  4. ASPIRIN [Concomitant]
  5. SERETIDE [Concomitant]
  6. ASMOL [Concomitant]
  7. KARVEA [Concomitant]

REACTIONS (4)
  - DYSPNOEA [None]
  - CARDIAC FAILURE [None]
  - PALPITATIONS [None]
  - PRURITUS [None]
